FAERS Safety Report 7655829-3 (Version None)
Quarter: 2011Q3

REPORT INFORMATION
  Report Type: 
  Country: None (occurrence: None)
  Receive Date: 20110804
  Receipt Date: 20110802
  Transmission Date: 20111222
  Serious: Yes (Life-Threatening, Hospitalization, Other)
  Sender: FDA-Public Use
  Company Number: JP-PFIZER INC-2011150728

PATIENT
  Age: 85 Year
  Sex: Male

DRUGS (8)
  1. CRESTOR [Concomitant]
     Indication: HYPERLIPIDAEMIA
     Dosage: 25 MG, 1X/DAY
     Route: 048
     Dates: end: 20100204
  2. TRICHLORMETHIAZIDE [Concomitant]
     Indication: HYPERTENSION
     Dosage: 2 MG, 1X/DAY
     Route: 048
     Dates: end: 20100204
  3. ALLOZYM [Concomitant]
     Indication: HYPERURICAEMIA
     Dosage: 100 MG, 1X/DAY
     Route: 048
  4. PHENOBARBITAL TAB [Concomitant]
     Indication: CEREBRAL INFARCTION
     Dosage: 0.4 G, 2X/DAY
     Route: 048
     Dates: end: 20100204
  5. NORPACE [Suspect]
     Indication: ATRIAL FIBRILLATION
     Dosage: 100 MG, 3X/DAY
     Route: 048
     Dates: end: 20100204
  6. ARICEPT [Concomitant]
     Indication: DEMENTIA
     Dosage: 5 MG, 1X/DAY
     Route: 048
     Dates: end: 20100204
  7. LOSARTAN POTASSIUM [Concomitant]
     Indication: HYPERTENSION
     Dosage: 25 MG, 1X/DAY
     Route: 048
  8. LANSOPRAZOLE [Concomitant]
     Indication: GASTRIC ULCER
     Dosage: 15 MG, 1X/DAY
     Route: 048
     Dates: end: 20100204

REACTIONS (9)
  - CARDIOGENIC SHOCK [None]
  - CARDIO-RESPIRATORY ARREST [None]
  - ILEUS PARALYTIC [None]
  - MUSCULAR WEAKNESS [None]
  - BRADYCARDIA [None]
  - TORSADE DE POINTES [None]
  - ALTERED STATE OF CONSCIOUSNESS [None]
  - ELECTROCARDIOGRAM QT PROLONGED [None]
  - ACCIDENTAL OVERDOSE [None]
